FAERS Safety Report 18681681 (Version 2)
Quarter: 2021Q1

REPORT INFORMATION
  Report Type: Spontaneous
  Country: AU (occurrence: AU)
  Receive Date: 20201230
  Receipt Date: 20210116
  Transmission Date: 20210419
  Serious: Yes (Other)
  Sender: FDA-Public Use
  Company Number: NVSC2020AU338810

PATIENT
  Age: 87 Year
  Sex: Male

DRUGS (14)
  1. ATORVASTATIN [Suspect]
     Active Substance: ATORVASTATIN
     Indication: PRODUCT USED FOR UNKNOWN INDICATION
     Dosage: 10 MG, QD
     Route: 065
  2. SALBUTAMOL [Suspect]
     Active Substance: ALBUTEROL
     Indication: CHRONIC OBSTRUCTIVE PULMONARY DISEASE
     Dosage: UNK UNK, QD
     Route: 065
  3. THIAMINE. [Suspect]
     Active Substance: THIAMINE
     Indication: PRODUCT USED FOR UNKNOWN INDICATION
     Dosage: 100 MG, QD
     Route: 065
  4. BUPRENORPHINE. [Suspect]
     Active Substance: BUPRENORPHINE
     Indication: PRODUCT USED FOR UNKNOWN INDICATION
     Dosage: 5 MG, QW
     Route: 065
     Dates: start: 2017, end: 2017
  5. ACETYLSALICYLIC ACID [Suspect]
     Active Substance: ASPIRIN
     Indication: PRODUCT USED FOR UNKNOWN INDICATION
     Dosage: 100 MG, QD
     Route: 065
  6. RISPERIDONE. [Suspect]
     Active Substance: RISPERIDONE
     Dosage: 0.5 MG
     Route: 065
     Dates: end: 2017
  7. TIOTROPIUM BROMIDE [Suspect]
     Active Substance: TIOTROPIUM BROMIDE
     Indication: PRODUCT USED FOR UNKNOWN INDICATION
     Dosage: 18 MG, QD
     Route: 065
  8. PERINDOPRIL [Suspect]
     Active Substance: PERINDOPRIL
     Indication: PRODUCT USED FOR UNKNOWN INDICATION
     Dosage: 8 MG, QD
     Route: 065
  9. SODIUM VALPROATE [Suspect]
     Active Substance: VALPROATE SODIUM
     Indication: PRODUCT USED FOR UNKNOWN INDICATION
     Dosage: UNK UNK, QD
     Route: 065
     Dates: start: 201612
  10. OXYCODONE [Suspect]
     Active Substance: OXYCODONE
     Indication: PRODUCT USED FOR UNKNOWN INDICATION
     Dosage: 2.5 MG
     Route: 065
  11. RISPERIDONE. [Suspect]
     Active Substance: RISPERIDONE
     Indication: DEMENTIA WITH LEWY BODIES
     Dosage: 0.25 MG, Q12H
     Route: 065
     Dates: start: 2017
  12. MIRTAZAPINE. [Suspect]
     Active Substance: MIRTAZAPINE
     Indication: PRODUCT USED FOR UNKNOWN INDICATION
     Dosage: 15 MG, QD
     Route: 065
  13. PARACETAMOL [Suspect]
     Active Substance: ACETAMINOPHEN
     Indication: PRODUCT USED FOR UNKNOWN INDICATION
     Dosage: 500 MG
     Route: 065
     Dates: start: 2017, end: 2017
  14. ALLOPURINOL. [Suspect]
     Active Substance: ALLOPURINOL
     Indication: PRODUCT USED FOR UNKNOWN INDICATION
     Dosage: 300 MG, QD
     Route: 065

REACTIONS (44)
  - Tardive dyskinesia [Recovered/Resolved]
  - Depression [Unknown]
  - Dysphagia [Recovering/Resolving]
  - Ligament sprain [Unknown]
  - Mobility decreased [Unknown]
  - Muscle rigidity [Recovered/Resolved]
  - Rib fracture [Recovering/Resolving]
  - Delirium [Recovered/Resolved]
  - Asthenia [Recovering/Resolving]
  - Decreased gait velocity [Recovering/Resolving]
  - Dyspnoea [Unknown]
  - Hunger [Unknown]
  - Urinary tract infection [Unknown]
  - Product prescribing issue [Unknown]
  - Feeding disorder [Unknown]
  - Sarcopenia [Recovering/Resolving]
  - Sepsis [Unknown]
  - Cerebellar ataxia [Unknown]
  - Cachexia [Unknown]
  - Depressed level of consciousness [Unknown]
  - Balance disorder [Unknown]
  - Condition aggravated [Recovering/Resolving]
  - Dysstasia [Unknown]
  - Joint injury [Recovering/Resolving]
  - Malnutrition [Recovering/Resolving]
  - Sedation [Recovering/Resolving]
  - Aptyalism [Recovering/Resolving]
  - Communication disorder [Recovering/Resolving]
  - Mastication disorder [Recovering/Resolving]
  - Cognitive disorder [Recovering/Resolving]
  - Ecchymosis [Unknown]
  - General physical health deterioration [Unknown]
  - Muscular weakness [Recovering/Resolving]
  - Hallucination [Unknown]
  - Dystonia [Recovered/Resolved]
  - Dementia with Lewy bodies [Unknown]
  - Seizure [Unknown]
  - Dizziness postural [Unknown]
  - Extrapyramidal disorder [Recovered/Resolved]
  - Fall [Recovering/Resolving]
  - Muscle atrophy [Unknown]
  - Muscle contracture [Unknown]
  - Weight decreased [Unknown]
  - Balance disorder [Recovered/Resolved]

NARRATIVE: CASE EVENT DATE: 2016
